FAERS Safety Report 14923136 (Version 1)
Quarter: 2018Q2

REPORT INFORMATION
  Report Type: Spontaneous
  Country: IN (occurrence: IN)
  Receive Date: 20180522
  Receipt Date: 20180522
  Transmission Date: 20180711
  Serious: Yes (Other)
  Sender: FDA-Public Use
  Company Number: IN-DRREDDYS-USA/IND/18/0099121

PATIENT
  Age: 47 Year

DRUGS (4)
  1. DOXORUBICIN HYDROCHLORIDE (PEGYLATED LIPOSOMAL) [Suspect]
     Active Substance: DOXORUBICIN HYDROCHLORIDE
     Indication: T-CELL PROLYMPHOCYTIC LEUKAEMIA
     Route: 065
  2. CYCLOPHOSPHAMIDE. [Suspect]
     Active Substance: CYCLOPHOSPHAMIDE
     Indication: T-CELL PROLYMPHOCYTIC LEUKAEMIA
     Route: 065
  3. VINCRISTINE [Suspect]
     Active Substance: VINCRISTINE
     Indication: T-CELL PROLYMPHOCYTIC LEUKAEMIA
     Route: 065
  4. PREDNISOLONE. [Suspect]
     Active Substance: PREDNISOLONE
     Indication: T-CELL PROLYMPHOCYTIC LEUKAEMIA
     Route: 065

REACTIONS (1)
  - Febrile neutropenia [Unknown]
